FAERS Safety Report 10199919 (Version 1)
Quarter: 2014Q2

REPORT INFORMATION
  Report Type: Spontaneous
  Country: IT (occurrence: IT)
  Receive Date: 20140527
  Receipt Date: 20140527
  Transmission Date: 20141212
  Serious: Yes (Hospitalization)
  Sender: FDA-Public Use
  Company Number: IT-TEVA-483496ISR

PATIENT
  Age: 58 Year
  Sex: Male

DRUGS (1)
  1. LEVODOPA + CARBIDOPA [Suspect]
     Indication: PARKINSON^S DISEASE
     Dosage: 12 DF TOTAL
     Route: 048
     Dates: start: 20131123, end: 20131123

REACTIONS (3)
  - Medication error [Recovered/Resolved]
  - Neurological symptom [Recovered/Resolved]
  - Overdose [Recovered/Resolved]
